FAERS Safety Report 25719813 (Version 1)
Quarter: 2025Q3

REPORT INFORMATION
  Report Type: Report from Study
  Country: MX (occurrence: MX)
  Receive Date: 20250825
  Receipt Date: 20250825
  Transmission Date: 20251021
  Serious: Yes (Hospitalization)
  Sender: UCB
  Company Number: MX-UCBSA-2025050915

PATIENT
  Sex: Female
  Weight: 23.4 kg

DRUGS (6)
  1. FENFLURAMINE HYDROCHLORIDE [Suspect]
     Active Substance: FENFLURAMINE HYDROCHLORIDE
     Indication: Epilepsy
     Dosage: 0.1 MILLIGRAM/KILOGRAM, 2X/DAY (BID)
     Route: 048
     Dates: start: 20250514, end: 2025
  2. FENFLURAMINE HYDROCHLORIDE [Suspect]
     Active Substance: FENFLURAMINE HYDROCHLORIDE
     Dosage: 0.42 MILLIGRAM/KILOGRAM, 2X/DAY (BID)
     Route: 048
     Dates: start: 2025
  3. VALPROATE MAGNESIUM [Concomitant]
     Active Substance: VALPROATE MAGNESIUM
     Indication: Epilepsy
     Dosage: 275 MILLIGRAM, 3X/DAY (TID)
     Route: 048
  4. CLOBAZAM [Concomitant]
     Active Substance: CLOBAZAM
     Indication: Epilepsy
     Dosage: 5 MILLIGRAM, 2X/DAY (BID)
     Route: 048
  5. CLOBAZAM [Concomitant]
     Active Substance: CLOBAZAM
     Dosage: 2.5 MILLIGRAM, ONCE DAILY (QD)
     Route: 048
  6. CANNABIDIOL\HERBALS [Concomitant]
     Active Substance: CANNABIDIOL\HERBALS
     Indication: Epilepsy
     Dosage: 115.5 MILLIGRAM, 3X/DAY (TID)
     Route: 048

REACTIONS (9)
  - Dehydration [Recovered/Resolved]
  - Catheter placement [Recovered/Resolved]
  - Decreased appetite [Recovering/Resolving]
  - Diarrhoea [Recovering/Resolving]
  - Somnolence [Recovered/Resolved]
  - Lethargy [Recovered/Resolved]
  - Faeces soft [Recovering/Resolving]
  - Weight decreased [Unknown]
  - Product use in unapproved indication [Unknown]

NARRATIVE: CASE EVENT DATE: 20250101
